FAERS Safety Report 4482692-4 (Version None)
Quarter: 2004Q4

REPORT INFORMATION
  Report Type: 
  Country: None (occurrence: None)
  Receive Date: 20041022
  Receipt Date: 20041013
  Transmission Date: 20050328
  Serious: Yes (Hospitalization, Other)
  Sender: FDA-Public Use
  Company Number: PHBS2004CA13623

PATIENT
  Sex: Female

DRUGS (4)
  1. DIOVAN [Suspect]
     Dosage: 160 MG, QD
     Route: 048
  2. DIOVAN [Suspect]
     Dosage: 80 MG, BID
     Route: 048
     Dates: start: 19990101
  3. SYNTHROID [Concomitant]
     Indication: THYROID DISORDER
  4. NITRO [Concomitant]
     Indication: ANGINA PECTORIS

REACTIONS (1)
  - MYOCARDIAL INFARCTION [None]
